FAERS Safety Report 18563852 (Version 1)
Quarter: 2020Q4

REPORT INFORMATION
  Report Type: Spontaneous
  Country: CN (occurrence: CN)
  Receive Date: 20201201
  Receipt Date: 20201201
  Transmission Date: 20210114
  Serious: Yes (Hospitalization, Other)
  Sender: FDA-Public Use
  Company Number: CN-MSNLABS-2020MSNLIT00415

PATIENT
  Age: 47 Year
  Sex: Male

DRUGS (1)
  1. DECITABINE FOR INJECTION 50 MG [Suspect]
     Active Substance: DECITABINE
     Indication: PRODUCT USED FOR UNKNOWN INDICATION
     Route: 042

REACTIONS (4)
  - Glomerulonephritis rapidly progressive [None]
  - Cushingoid [Unknown]
  - Thrombotic microangiopathy [None]
  - Renal tubular necrosis [None]
